FAERS Safety Report 6091035-4 (Version None)
Quarter: 2009Q1

REPORT INFORMATION
  Report Type: 
  Country: None (occurrence: None)
  Receive Date: 20090225
  Receipt Date: 20090217
  Transmission Date: 20090719
  Serious: Yes (Hospitalization, Other)
  Sender: FDA-Public Use
  Company Number: PHHY2009ZA05765

PATIENT

DRUGS (14)
  1. MYFORTIC [Suspect]
     Indication: LIVER TRANSPLANT
     Dosage: 360 MG, BID
  2. MYFORTIC [Suspect]
     Dosage: 540 MG, BID
     Dates: start: 20090211
  3. SANDIMMUNE [Suspect]
     Indication: LIVER TRANSPLANT
     Dosage: 100 MG, BID
  4. STEROIDS NOS [Concomitant]
     Indication: LIVER TRANSPLANT
  5. METICORTEN [Concomitant]
     Dosage: 5 MG DAILY
  6. RIFAFOUR E-200 [Concomitant]
     Dosage: 3 TABLETS DAILY
     Dates: start: 20070917, end: 20080610
  7. PYRAZINAMIDE [Concomitant]
     Dosage: 500MG
     Dates: start: 20080610
  8. PYRODOXINE [Concomitant]
     Dosage: 25 MG DAILY
  9. BACTRIM [Concomitant]
     Dosage: 3 TIMES/WEEK (MONDAY, WEDNESDAY + FRIDAY)
  10. OFLOXACIN [Concomitant]
     Dosage: 200 MG, BID
     Dates: start: 20080301
  11. ETHIONAMIDE [Concomitant]
     Dosage: UNK
  12. ETHIONAMIDE [Concomitant]
     Dosage: 500 MG DAILY
     Dates: start: 20080601
  13. TERIZIDONE [Concomitant]
     Dosage: 250 MG, BID
     Dates: start: 20080610
  14. AMIKACIN [Concomitant]
     Dosage: 500 MG
     Dates: start: 20080610, end: 20081201

REACTIONS (6)
  - DRUG LEVEL FLUCTUATING [None]
  - GENERAL PHYSICAL HEALTH DETERIORATION [None]
  - JAUNDICE [None]
  - LIVER TRANSPLANT REJECTION [None]
  - TREATMENT NONCOMPLIANCE [None]
  - TUBERCULOSIS [None]
